FAERS Safety Report 9232168 (Version 1)
Quarter: 2013Q2

REPORT INFORMATION
  Report Type: Spontaneous
  Country: US (occurrence: US)
  Receive Date: 20130415
  Receipt Date: 20130415
  Transmission Date: 20140414
  Serious: Yes (Hospitalization)
  Sender: FDA-Public Use
  Company Number: US-PFIZER INC-2013115713

PATIENT
  Sex: Male

DRUGS (4)
  1. REVATIO [Suspect]
     Indication: VASODILATION PROCEDURE
     Dosage: 20 MG, 3X/DAY
     Route: 048
  2. GABAPENTIN [Concomitant]
     Dosage: UNK
  3. AMITRIPTYLINE [Concomitant]
     Dosage: UNK
  4. NIFEDIAC [Concomitant]
     Dosage: 90 MG, 1X/DAY
     Route: 048

REACTIONS (2)
  - Cardiac disorder [Unknown]
  - Off label use [Unknown]
